FAERS Safety Report 6284567-7 (Version None)
Quarter: 2009Q3

REPORT INFORMATION
  Report Type: 
  Country: None (occurrence: None)
  Receive Date: 20090727
  Receipt Date: 20090720
  Transmission Date: 20100115
  Serious: Yes (Other)
  Sender: FDA-Public Use
  Company Number: US-ROXANE LABORATORIES, INC.-2009-RO-00724RO

PATIENT
  Sex: Male
  Weight: 1 kg

DRUGS (9)
  1. MYCOPHENOLATE MOFETIL [Suspect]
     Indication: DRUG EXPOSURE DURING PREGNANCY
     Route: 064
  2. PREDNISONE [Suspect]
     Indication: DRUG EXPOSURE DURING PREGNANCY
     Route: 064
  3. HYDROXYCHLOROQUINE SULFATE [Suspect]
     Indication: DRUG EXPOSURE DURING PREGNANCY
     Route: 064
  4. LISINOPRIL [Suspect]
     Indication: DRUG EXPOSURE DURING PREGNANCY
     Route: 064
  5. IRON [Suspect]
     Indication: DRUG EXPOSURE DURING PREGNANCY
     Route: 064
  6. VITAMIN TAB [Suspect]
     Indication: DRUG EXPOSURE DURING PREGNANCY
     Route: 064
  7. CALCIUM [Suspect]
     Indication: DRUG EXPOSURE DURING PREGNANCY
     Route: 064
  8. VITAMIN D [Suspect]
     Indication: DRUG EXPOSURE DURING PREGNANCY
     Route: 064
  9. ACETAMINOPHEN [Suspect]
     Indication: DRUG EXPOSURE DURING PREGNANCY
     Route: 064

REACTIONS (10)
  - CONDUCTIVE DEAFNESS [None]
  - EXTERNAL AUDITORY CANAL ATRESIA [None]
  - FOETAL GROWTH RETARDATION [None]
  - HYDROCELE [None]
  - INGUINAL HERNIA [None]
  - MICROCEPHALY [None]
  - MICROTIA [None]
  - PHIMOSIS [None]
  - PILONIDAL CYST CONGENITAL [None]
  - PREMATURE BABY [None]
